FAERS Safety Report 7692261-0 (Version None)
Quarter: 2011Q3

REPORT INFORMATION
  Report Type: 
  Country: None (occurrence: None)
  Receive Date: 20110818
  Receipt Date: 20110805
  Transmission Date: 20111222
  Serious: Yes (Other)
  Sender: FDA-Public Use
  Company Number: FR-UCBSA-031817

PATIENT
  Sex: Female
  Weight: 110 kg

DRUGS (7)
  1. EFFEXOR [Concomitant]
     Dosage: 2 UNITS
     Route: 048
     Dates: start: 20010101
  2. PRAZEPAM [Concomitant]
     Dosage: 2 UNITS
     Route: 048
     Dates: start: 20010101
  3. MAGNE B6 [Concomitant]
     Route: 048
     Dates: start: 20010101
  4. FERROUS SULFATE TAB [Concomitant]
     Dosage: 2 UNITS
     Route: 048
     Dates: start: 20010101
  5. XYZAL [Suspect]
     Indication: AQUAGENIC PRURITUS
     Dosage: 1 TABLET DAILY
     Route: 048
  6. LEVOTHYROXINE SODIUM [Concomitant]
     Indication: HYPOTHYROIDISM
     Dates: start: 20010101
  7. XYZAL [Suspect]
     Dosage: DOSE/INTAKE 3: NUMBER OF DAILY INTAKES 3
     Route: 048
     Dates: start: 20100901

REACTIONS (4)
  - CHRONIC LYMPHOCYTIC LEUKAEMIA [None]
  - FATIGUE [None]
  - DRUG INEFFECTIVE [None]
  - OVERDOSE [None]
